FAERS Safety Report 13008419 (Version 2)
Quarter: 2016Q4

REPORT INFORMATION
  Report Type: Report from Study
  Country: BR (occurrence: BR)
  Receive Date: 20161208
  Receipt Date: 20161222
  Transmission Date: 20170207
  Serious: Yes (Other)
  Sender: FDA-Public Use
  Company Number: BR-ASTRAZENECA-2016SF26022

PATIENT
  Age: 21308 Day
  Sex: Female

DRUGS (7)
  1. BRILINTA [Suspect]
     Active Substance: TICAGRELOR
     Indication: VASCULAR STENT THROMBOSIS
     Route: 048
     Dates: start: 2016
  2. BRILINTA [Suspect]
     Active Substance: TICAGRELOR
     Indication: VASCULAR STENT THROMBOSIS
     Route: 048
     Dates: start: 20160303, end: 2016
  3. BRILINTA [Suspect]
     Active Substance: TICAGRELOR
     Indication: INFARCTION
     Dosage: UNKNOWN
     Route: 048
     Dates: start: 20150428, end: 201507
  4. BRILINTA [Suspect]
     Active Substance: TICAGRELOR
     Indication: VASCULAR STENT THROMBOSIS
     Dosage: UNKNOWN
     Route: 048
     Dates: start: 20150428, end: 201507
  5. BRILINTA [Suspect]
     Active Substance: TICAGRELOR
     Indication: INFARCTION
     Route: 048
     Dates: start: 20160303, end: 2016
  6. CLOPIDOGREL [Concomitant]
     Active Substance: CLOPIDOGREL BISULFATE
  7. BRILINTA [Suspect]
     Active Substance: TICAGRELOR
     Indication: INFARCTION
     Route: 048
     Dates: start: 2016

REACTIONS (6)
  - Device occlusion [Unknown]
  - Infarction [Unknown]
  - Chest pain [Recovered/Resolved]
  - Anaemia [Unknown]
  - Intentional product misuse [Unknown]
  - Intestinal haemorrhage [Unknown]

NARRATIVE: CASE EVENT DATE: 20160303
